FAERS Safety Report 4347446-8 (Version None)
Quarter: 2004Q2

REPORT INFORMATION
  Report Type: 
  Country: None (occurrence: None)
  Receive Date: 20040422
  Receipt Date: 20040407
  Transmission Date: 20050107
  Serious: Yes (Death)
  Sender: FDA-Public Use
  Company Number: USA040464288

PATIENT
  Sex: Male

DRUGS (2)
  1. XIGRIS [Suspect]
     Indication: SEPSIS
     Dosage: 24 UG/KG/HR
  2. VASOPRESSOR AGENTS [Concomitant]

REACTIONS (1)
  - DEATH [None]
